FAERS Safety Report 4633757-5 (Version None)
Quarter: 2005Q2

REPORT INFORMATION
  Report Type: 
  Country: None (occurrence: None)
  Receive Date: 20050331
  Receipt Date: 20040219
  Transmission Date: 20051028
  Serious: Yes (Other)
  Sender: FDA-Public Use
  Company Number: 200410861BCC

PATIENT
  Age: 42 Year
  Sex: Female
  Weight: 79.3795 kg

DRUGS (2)
  1. ALEVE (CAPLET) [Suspect]
     Dosage: 440 MG, ONCE, ORAL
     Route: 048
     Dates: start: 20040219
  2. ESTROGEN [Concomitant]

REACTIONS (6)
  - FEELING HOT [None]
  - GENERALISED ERYTHEMA [None]
  - HYPERSENSITIVITY [None]
  - OROPHARYNGEAL SWELLING [None]
  - PRURITUS GENERALISED [None]
  - THROAT TIGHTNESS [None]
